FAERS Safety Report 7819634-7 (Version None)
Quarter: 2011Q4

REPORT INFORMATION
  Report Type: 
  Country: None (occurrence: None)
  Receive Date: 20111018
  Receipt Date: 20111013
  Transmission Date: 20120403
  Serious: Yes (Death)
  Sender: FDA-Public Use
  Company Number: DE-SANOFI-AVENTIS-2011SA067326

PATIENT
  Age: 61 Year
  Sex: Female

DRUGS (3)
  1. ALL OTHER THERAPEUTIC PRODUCTS [Concomitant]
     Dates: end: 20110101
  2. ARAVA [Suspect]
     Route: 048
     Dates: start: 20100301, end: 20111001
  3. METHOTREXATE [Concomitant]
     Route: 065
     Dates: end: 20111001

REACTIONS (1)
  - HEPATIC FAILURE [None]
